FAERS Safety Report 8265281-5 (Version None)
Quarter: 2012Q2

REPORT INFORMATION
  Report Type: 
  Country: None (occurrence: None)
  Receive Date: 20120406
  Receipt Date: 20120323
  Transmission Date: 20120825
  Serious: Yes (Other)
  Sender: FDA-Public Use
  Company Number: NZ-ROCHE-CID000000001986250

PATIENT
  Sex: Female
  Weight: 43.6 kg

DRUGS (5)
  1. ACETAMINOPHEN [Concomitant]
     Dates: start: 20111101
  2. MEGESTROL ACETATE [Concomitant]
     Dates: start: 20111003
  3. VEMURAFENIB [Suspect]
     Indication: MALIGNANT MELANOMA
     Route: 048
     Dates: start: 20110502, end: 20120126
  4. MOMETASONE FUROATE [Concomitant]
     Dosage: 2 APPLICATION
     Dates: start: 20110523
  5. FUSIDIC ACID [Concomitant]
     Dosage: 4 DROPS
     Dates: start: 20110926

REACTIONS (1)
  - LEUKOENCEPHALOPATHY [None]
